FAERS Safety Report 8213440-X (Version None)
Quarter: 2012Q1

REPORT INFORMATION
  Report Type: 
  Country: None (occurrence: None)
  Receive Date: 20120315
  Receipt Date: 20120303
  Transmission Date: 20120608
  Serious: Yes (Other)
  Sender: FDA-Public Use
  Company Number: PHHY2012FR019315

PATIENT
  Sex: Female

DRUGS (2)
  1. SOLU-MEDROL [Suspect]
     Dosage: 20 MG, QD
  2. ILARIS [Suspect]
     Indication: CHRONIC INFANTILE NEUROLOGICAL CUTANEOUS AND ARTICULAR SYNDROME
     Dosage: 150 MG, Q2MO

REACTIONS (5)
  - BRONCHITIS [None]
  - WHITE BLOOD CELL COUNT INCREASED [None]
  - CHEST PAIN [None]
  - COUGH [None]
  - IMMUNODEFICIENCY [None]
